FAERS Safety Report 5691465-6 (Version None)
Quarter: 2008Q1

REPORT INFORMATION
  Report Type: 
  Country: None (occurrence: None)
  Receive Date: 20080331
  Receipt Date: 20080326
  Transmission Date: 20080703
  Serious: Yes (Death, Hospitalization)
  Sender: FDA-Public Use
  Company Number: 163-21880-08020372

PATIENT
  Age: 72 Year
  Sex: Male

DRUGS (11)
  1. REVLIMID [Suspect]
     Indication: MULTIPLE MYELOMA
     Dosage: 15 MG, 1 IN 1 D, ORAL
     Route: 048
     Dates: start: 20071023
  2. SYNTHROID [Concomitant]
  3. PEPCID [Concomitant]
  4. MULTIVITAMIN [Concomitant]
  5. AMBIEN [Concomitant]
  6. BENICAR [Concomitant]
  7. LANOXIN [Concomitant]
  8. ASPIRIN [Concomitant]
  9. TERAZOSIN HCL [Concomitant]
  10. VELCADE [Concomitant]
  11. AMARYL [Concomitant]

REACTIONS (3)
  - CARDIAC DISORDER [None]
  - CARDIAC FAILURE CONGESTIVE [None]
  - DISEASE PROGRESSION [None]
